FAERS Safety Report 18798389 (Version 1)
Quarter: 2021Q1

REPORT INFORMATION
  Report Type: Spontaneous
  Country: US (occurrence: US)
  Receive Date: 20210128
  Receipt Date: 20210128
  Transmission Date: 20210419
  Serious: Yes (Hospitalization)
  Sender: FDA-Public Use
  Company Number: US-ROCHE-2758656

PATIENT
  Age: 64 Year
  Sex: Female

DRUGS (17)
  1. PANTOPRAZOLE [Concomitant]
     Active Substance: PANTOPRAZOLE
  2. SPIRONOLACTON [Concomitant]
     Active Substance: SPIRONOLACTONE
  3. HUMALOG [Concomitant]
     Active Substance: INSULIN LISPRO
  4. ESBRIET [Suspect]
     Active Substance: PIRFENIDONE
     Indication: IDIOPATHIC PULMONARY FIBROSIS
     Route: 048
     Dates: start: 20181130
  5. PREDNISONE. [Concomitant]
     Active Substance: PREDNISONE
  6. DOFETILIDE. [Concomitant]
     Active Substance: DOFETILIDE
  7. JANUVIA [Concomitant]
     Active Substance: SITAGLIPTIN PHOSPHATE
  8. OMEPRAZOLE. [Concomitant]
     Active Substance: OMEPRAZOLE
  9. XARELTO [Concomitant]
     Active Substance: RIVAROXABAN
  10. NYSTATIN. [Concomitant]
     Active Substance: NYSTATIN
  11. NYSTOP [Concomitant]
     Active Substance: NYSTATIN
  12. GABAPENTIN. [Concomitant]
     Active Substance: GABAPENTIN
  13. ISOSORBIDE. [Concomitant]
     Active Substance: ISOSORBIDE
  14. METOPROLOL SUCCINATE ER [Concomitant]
     Active Substance: METOPROLOL SUCCINATE
  15. METOPROLOL TARTRATE. [Concomitant]
     Active Substance: METOPROLOL TARTRATE
  16. FAMOTIDINE. [Concomitant]
     Active Substance: FAMOTIDINE
  17. SILDENAFIL. [Concomitant]
     Active Substance: SILDENAFIL

REACTIONS (3)
  - Vomiting [Recovered/Resolved]
  - Diarrhoea [Recovered/Resolved]
  - Hypotension [Recovered/Resolved]

NARRATIVE: CASE EVENT DATE: 20201226
